FAERS Safety Report 5399006-8 (Version None)
Quarter: 2007Q3

REPORT INFORMATION
  Report Type: 
  Country: None (occurrence: None)
  Receive Date: 20070727
  Receipt Date: 20070719
  Transmission Date: 20080115
  Serious: Yes (Other)
  Sender: FDA-Public Use
  Company Number: JP-BRISTOL-MYERS SQUIBB COMPANY-13839907

PATIENT
  Age: 84 Year
  Sex: Female

DRUGS (10)
  1. GATIFLO TABS 100 MG [Suspect]
     Indication: BRONCHITIS
     Route: 048
     Dates: start: 20070615, end: 20070619
  2. LASIX [Concomitant]
     Dates: start: 20060826, end: 20070622
  3. SPIRONOLACTONE [Concomitant]
     Route: 048
     Dates: start: 20060826, end: 20070622
  4. URSO 250 [Concomitant]
     Route: 048
     Dates: start: 20060801
  5. GASMOTIN [Concomitant]
     Route: 048
     Dates: start: 20060801
  6. RULID [Concomitant]
     Route: 048
     Dates: start: 20070605, end: 20070615
  7. HALFDIGOXIN [Concomitant]
     Route: 048
     Dates: start: 20060801
  8. BLOSTAR M [Concomitant]
     Route: 048
     Dates: start: 20060801
  9. PENFILL R [Concomitant]
  10. HUMULIN 70/30 [Concomitant]

REACTIONS (1)
  - HYPERGLYCAEMIA [None]
